FAERS Safety Report 10578131 (Version 3)
Quarter: 2017Q1

REPORT INFORMATION
  Report Type: Report from Study
  Country: AT (occurrence: AT)
  Receive Date: 20141112
  Receipt Date: 20170131
  Transmission Date: 20170428
  Serious: Yes (Hospitalization)
  Sender: FDA-Public Use
  Company Number: AT-ROCHE-1470116

PATIENT
  Age: 9 Year
  Sex: Male
  Weight: 25.5 kg

DRUGS (15)
  1. THALIDOMIDE [Suspect]
     Active Substance: THALIDOMIDE
     Indication: MEDULLOBLASTOMA RECURRENT
     Dosage: LAST DOSE RECEIVED PRIOR TO SAE ON 02/OCT/2014
     Route: 065
     Dates: start: 20140626
  2. ETOPOSIDE. [Suspect]
     Active Substance: ETOPOSIDE
     Indication: MEDULLOBLASTOMA RECURRENT
     Dosage: LAST DOSE PRIOR TO EVENT 02/OCT/2014
     Route: 037
     Dates: start: 20140626
  3. CELECOXIB. [Suspect]
     Active Substance: CELECOXIB
     Indication: MEDULLOBLASTOMA RECURRENT
     Dosage: LAST DOSE RECEIVED PRIOR TO SAE ON 02/OCT/2014
     Route: 065
     Dates: start: 20140626
  4. CYCLOPHOSPHAMIDE. [Suspect]
     Active Substance: CYCLOPHOSPHAMIDE
     Route: 065
     Dates: end: 20141029
  5. BEVACIZUMAB [Suspect]
     Active Substance: BEVACIZUMAB
     Indication: MEDULLOBLASTOMA RECURRENT
     Dosage: LAST DOSE RECEIVED PRIOR TO SAE ON 02/OCT/2014
     Route: 065
     Dates: start: 20140626
  6. OLEOVIT D3 [Concomitant]
     Active Substance: CHOLECALCIFEROL
     Indication: VITAMIN D DEFICIENCY
     Route: 048
     Dates: start: 20140626
  7. LIPOSOMAL CYTARABINE [Suspect]
     Active Substance: CYTARABINE
     Indication: MEDULLOBLASTOMA RECURRENT
     Dosage: LAST DOSE RECEIVED PRIOR TO SAE ON 02/OCT/2014
     Route: 037
     Dates: start: 20140626
  8. LIDAPRIM [Concomitant]
     Indication: PROPHYLAXIS
     Route: 048
     Dates: start: 20140624
  9. FENOFIBRATE. [Suspect]
     Active Substance: FENOFIBRATE
     Indication: MEDULLOBLASTOMA RECURRENT
     Dosage: LAST DOSE RECEIVED PRIOR TO SAE ON 02/OCT/2014
     Route: 065
     Dates: start: 20140626
  10. ETOPOSIDE. [Suspect]
     Active Substance: ETOPOSIDE
     Route: 048
     Dates: start: 20141030
  11. CYCLOPHOSPHAMIDE. [Suspect]
     Active Substance: CYCLOPHOSPHAMIDE
     Indication: MEDULLOBLASTOMA RECURRENT
     Route: 065
     Dates: start: 20140626, end: 20140917
  12. DEXAMETHASONE. [Concomitant]
     Active Substance: DEXAMETHASONE
     Indication: HEADACHE
     Route: 048
     Dates: start: 20140910, end: 20141006
  13. DEXAMETHASONE. [Concomitant]
     Active Substance: DEXAMETHASONE
     Indication: NAUSEA
  14. ETOPOSIDE. [Suspect]
     Active Substance: ETOPOSIDE
     Indication: MEDULLOBLASTOMA RECURRENT
     Dosage: LAST DOSE RECEIVED PRIOR TO SAE ON 02/OCT/2014
     Route: 048
     Dates: start: 20140918
  15. ZOFRAN [Concomitant]
     Active Substance: ONDANSETRON HYDROCHLORIDE
     Indication: NAUSEA
     Route: 048
     Dates: start: 20141030

REACTIONS (2)
  - Enterovirus infection [Unknown]
  - Pain in extremity [Unknown]

NARRATIVE: CASE EVENT DATE: 20141002
